FAERS Safety Report 15489211 (Version 5)
Quarter: 2020Q4

REPORT INFORMATION
  Report Type: Spontaneous
  Country: US (occurrence: US)
  Receive Date: 20181011
  Receipt Date: 20201127
  Transmission Date: 20210113
  Serious: No
  Sender: FDA-Public Use
  Company Number: US-PFIZER INC-2018402350

PATIENT
  Age: 66 Year
  Sex: Male

DRUGS (1)
  1. XELJANZ XR [Suspect]
     Active Substance: TOFACITINIB CITRATE
     Dosage: 11 MG, 1X/DAY
     Route: 048

REACTIONS (7)
  - Cardiac stress test abnormal [Unknown]
  - Blood pressure abnormal [Unknown]
  - Immune system disorder [Unknown]
  - Drug hypersensitivity [Not Recovered/Not Resolved]
  - Malaise [Unknown]
  - Lipids increased [Unknown]
  - Fatigue [Unknown]
